FAERS Safety Report 15849364 (Version 1)
Quarter: 2019Q1

REPORT INFORMATION
  Report Type: Spontaneous
  Country: US (occurrence: US)
  Receive Date: 20190121
  Receipt Date: 20190121
  Transmission Date: 20190417
  Serious: Yes (Other)
  Sender: FDA-Public Use
  Company Number: US-SA-2019SA013058

PATIENT
  Age: 66 Year
  Sex: Female

DRUGS (2)
  1. DUPIXENT [Suspect]
     Active Substance: DUPILUMAB
     Indication: DERMATITIS ATOPIC
     Dosage: 600 MG
     Route: 058
  2. HYDROCORTISONE. [Concomitant]
     Active Substance: HYDROCORTISONE
     Indication: DERMATITIS ATOPIC

REACTIONS (10)
  - Ectropion [Recovering/Resolving]
  - Conjunctival hyperaemia [Recovered/Resolved]
  - Skin hypertrophy [Recovering/Resolving]
  - Conjunctivitis [Recovered/Resolved]
  - Perioral dermatitis [Recovering/Resolving]
  - Dermatitis atopic [Recovering/Resolving]
  - Erythema [Recovering/Resolving]
  - Skin exfoliation [Recovering/Resolving]
  - Conjunctival oedema [Recovered/Resolved]
  - Punctate keratitis [Unknown]
